FAERS Safety Report 6346692-1 (Version None)
Quarter: 2009Q3

REPORT INFORMATION
  Report Type: 
  Country: None (occurrence: None)
  Receive Date: 20090904
  Receipt Date: 20090827
  Transmission Date: 20100115
  Serious: Yes (Hospitalization, Other)
  Sender: FDA-Public Use
  Company Number: 86292

PATIENT
  Age: 20 Year
  Sex: Male

DRUGS (1)
  1. KETAMINE HCL [Suspect]
     Dosage: 6G

REACTIONS (5)
  - CYSTITIS [None]
  - DIABETES MELLITUS [None]
  - PAIN [None]
  - URETHRITIS [None]
  - URINARY TRACT INFECTION [None]
